FAERS Safety Report 17257300 (Version 1)
Quarter: 2019Q4

REPORT INFORMATION
  Report Type: Spontaneous
  Country: US (occurrence: US)
  Receive Date: 20191217
  Receipt Date: 20191217
  Transmission Date: 20200122
  Serious: No
  Sender: FDA-Public Use
  Company Number: None

PATIENT
  Age: 59 Year
  Sex: Female

DRUGS (1)
  1. HUMIRA [Suspect]
     Active Substance: ADALIMUMAB
     Dosage: ?          OTHER ROUTE:UNDERSKIN?

REACTIONS (3)
  - Dry skin [None]
  - Dehydration [None]
  - Pruritus [None]

NARRATIVE: CASE EVENT DATE: 20191213
